FAERS Safety Report 7742806-7 (Version None)
Quarter: 2011Q3

REPORT INFORMATION
  Report Type: 
  Country: None (occurrence: None)
  Receive Date: 20110831
  Receipt Date: 20110818
  Transmission Date: 20111222
  Serious: Yes (Other)
  Sender: FDA-Public Use
  Company Number: DSA_47481_2011

PATIENT
  Sex: Female

DRUGS (4)
  1. REBIF [Suspect]
     Dosage: 44 UG  3X/WEEK SUBCUTANEOUS
     Route: 058
     Dates: start: 20070122
  2. WELLBUTRIN [Suspect]
     Indication: DEPRESSION
     Dosage: (DF)
     Dates: end: 20101201
  3. ALPRAZOLAM [Concomitant]
  4. LEXAPRO [Concomitant]

REACTIONS (2)
  - CONVULSION [None]
  - LOSS OF CONSCIOUSNESS [None]
